FAERS Safety Report 7684046-6 (Version None)
Quarter: 2011Q3

REPORT INFORMATION
  Report Type: 
  Country: None (occurrence: None)
  Receive Date: 20110815
  Receipt Date: 20110809
  Transmission Date: 20111222
  Serious: Yes (Death)
  Sender: FDA-Public Use
  Company Number: KR-PFIZER INC-2011174921

PATIENT
  Age: 76 Year
  Sex: Male

DRUGS (8)
  1. CAMPTOSAR [Suspect]
     Indication: GASTRIC CANCER
     Dosage: 275 MG, UNK
     Route: 042
     Dates: start: 20110623, end: 20110702
  2. PROPIVERINE HYDROCHLORIDE [Concomitant]
     Dosage: 40 MG, UNK
     Dates: start: 20110117
  3. LEUCOVORIN CALCIUM [Suspect]
     Indication: GASTRIC CANCER
     Dosage: 306 MG, UNK
     Route: 042
     Dates: start: 20110623, end: 20110702
  4. TERAZOSIN HYDROCHLORIDE [Concomitant]
     Dosage: 5 MG, UNK
     Dates: start: 20110131
  5. ACETYLCARNITINE HYDROCHLORIDE [Concomitant]
     Dosage: 1000 MG, UNK
     Dates: start: 20110131
  6. FUROSEMIDE [Concomitant]
     Dosage: 40 MG, UNK
     Dates: start: 20110404
  7. FLUOROURACIL [Suspect]
     Indication: GASTRIC CANCER
     Dosage: 1620 MG, UNK
     Route: 042
     Dates: start: 20110623, end: 20110702
  8. ACETYLCYSTEINE [Concomitant]
     Dosage: 600 MG, UNK
     Dates: start: 20110131

REACTIONS (3)
  - SEPTIC SHOCK [None]
  - PNEUMONIA [None]
  - NEUTROPENIA [None]
